FAERS Safety Report 5310150-3 (Version None)
Quarter: 2007Q2

REPORT INFORMATION
  Report Type: 
  Country: None (occurrence: None)
  Receive Date: 20070423
  Receipt Date: 20070322
  Transmission Date: 20071010
  Serious: Yes (Disabling)
  Sender: FDA-Public Use
  Company Number: 167-20785-07040994

PATIENT
  Age: 44 Year
  Sex: Male

DRUGS (9)
  1. THALIDOMIDE [Suspect]
     Indication: MULTIPLE MYELOMA
     Dosage: 50 MG; 100 MG :  1 IN 1 D, ORAL
     Route: 048
     Dates: start: 20070205, end: 20070211
  2. THALIDOMIDE [Suspect]
     Indication: MULTIPLE MYELOMA
     Dosage: 50 MG; 100 MG :  1 IN 1 D, ORAL
     Route: 048
     Dates: start: 20070212, end: 20070221
  3. DEXAMETHASONE TAB [Suspect]
     Indication: MULTIPLE MYELOMA
     Dosage: 40 MG, DAILY, ORAL
     Route: 048
     Dates: start: 20031222
  4. CYCLOPHOSPHAMIDE [Concomitant]
  5. ALLOPURINOL [Concomitant]
  6. FLUCONAZOLE [Concomitant]
  7. OMEPRAZOLE [Concomitant]
  8. TRAMADOL HCL [Concomitant]
  9. ORAMORPH SR [Concomitant]

REACTIONS (3)
  - DERMATITIS EXFOLIATIVE [None]
  - DRUG ERUPTION [None]
  - LICHENOID KERATOSIS [None]
